FAERS Safety Report 20003740 (Version 1)
Quarter: 2021Q4

REPORT INFORMATION
  Report Type: Spontaneous
  Country: US (occurrence: US)
  Receive Date: 20211027
  Receipt Date: 20211027
  Transmission Date: 20220303
  Serious: Yes (Hospitalization, Other)
  Sender: FDA-Public Use
  Company Number: US-ALEMBIC PHARMACUETICALS LIMITED-2021SCAL000422

PATIENT

DRUGS (5)
  1. CLONAZEPAM [Suspect]
     Active Substance: CLONAZEPAM
     Indication: Bipolar disorder
     Dosage: UNK
     Route: 065
  2. QUETIAPINE FUMARATE [Suspect]
     Active Substance: QUETIAPINE FUMARATE
     Indication: Bipolar disorder
     Dosage: UNK
     Route: 065
  3. VALPROIC ACID [Suspect]
     Active Substance: VALPROIC ACID
     Indication: Bipolar disorder
     Dosage: UNK
     Route: 065
  4. L-CARNITINE [LEVOCARNITINE TARTRATE] [Concomitant]
     Indication: Hyperammonaemia
     Dosage: UNK
     Route: 065
  5. L-CARNITINE [LEVOCARNITINE TARTRATE] [Concomitant]
     Indication: Brain oedema

REACTIONS (7)
  - Hyperchloraemia [Unknown]
  - Suicide attempt [Unknown]
  - Hypokalaemia [Unknown]
  - Hyperglycaemia [Unknown]
  - Coma scale abnormal [Unknown]
  - Unresponsive to stimuli [Unknown]
  - Mental status changes [Not Recovered/Not Resolved]
